FAERS Safety Report 10175835 (Version 1)
Quarter: 2014Q2

REPORT INFORMATION
  Report Type: Spontaneous
  Country: US (occurrence: None)
  Receive Date: 20140425
  Receipt Date: 20140425
  Transmission Date: 20141212
  Serious: No
  Sender: FDA-Public Use
  Company Number: AP356-00340-SPO-US

PATIENT
  Age: 59 Year
  Sex: Female
  Weight: 86 kg

DRUGS (5)
  1. BELVIQ (LORCASERIN HYDROCHLORIDE) [Suspect]
     Indication: OBESITY
     Dosage: 2 IN 1 D
     Route: 048
     Dates: start: 20131205
  2. PAIN MEDICATION (OTHER ANALGESICS AND ANTIPYRETICS) [Concomitant]
  3. ANTI-INFLAMMATORY MEDICATION (DICLOFENAC DIETHYLAMINE) [Concomitant]
  4. MUSCLE RELAXER (MUSCLE RELAXER) [Concomitant]
  5. CHOLESTEROL MEDICATION (OTHER LIPID MODIFYING AGENTS) [Concomitant]

REACTIONS (1)
  - Blood glucose decreased [None]
